FAERS Safety Report 21529275 (Version 2)
Quarter: 2022Q4

REPORT INFORMATION
  Report Type: Report from Study
  Country: US (occurrence: US)
  Receive Date: 20221031
  Receipt Date: 20221107
  Transmission Date: 20230112
  Serious: Yes (Hospitalization)
  Sender: FDA-Public Use
  Company Number: US-MYLANLABS-2022M1119138

PATIENT
  Sex: Female
  Weight: 62.14 kg

DRUGS (1)
  1. GLATIRAMER ACETATE [Suspect]
     Active Substance: GLATIRAMER ACETATE
     Indication: Multiple sclerosis
     Dosage: 40 MILLIGRAM, 3XW
     Route: 065

REACTIONS (5)
  - COVID-19 [Unknown]
  - Injection site pain [Unknown]
  - Injection site mass [Unknown]
  - Weight decreased [Unknown]
  - Injection site erythema [Unknown]
